FAERS Safety Report 10040910 (Version 1)
Quarter: 2014Q1

REPORT INFORMATION
  Report Type: Report from Study
  Country: NL (occurrence: NL)
  Receive Date: 20140327
  Receipt Date: 20140327
  Transmission Date: 20141002
  Serious: Yes (Hospitalization)
  Sender: FDA-Public Use
  Company Number: NL-MPIJNJ-2014JNJ000966

PATIENT
  Sex: 0

DRUGS (5)
  1. VELCADE [Suspect]
     Indication: PLASMA CELL MYELOMA
     Dosage: 2.7 MG, UNK
     Route: 058
     Dates: start: 20140303, end: 20140313
  2. CYCLOPHOSPHAMIDE [Suspect]
     Indication: PLASMA CELL MYELOMA
     Dosage: 1050 MG, UNK
     Route: 042
     Dates: start: 20140303, end: 20140310
  3. DEXAMETHASONE [Suspect]
     Indication: PLASMA CELL MYELOMA
     Dosage: 40 MG, UNK
     Route: 048
     Dates: start: 20140303, end: 20140313
  4. ZOFRAN                             /00955301/ [Concomitant]
     Dosage: UNK
     Route: 048
     Dates: start: 20140221, end: 20140313
  5. OXYCODON [Concomitant]
     Dosage: 10 MG, UNK
     Dates: start: 20140131, end: 20140313

REACTIONS (1)
  - Anal ulcer [Not Recovered/Not Resolved]
